FAERS Safety Report 5504481-1 (Version None)
Quarter: 2007Q4

REPORT INFORMATION
  Report Type: 
  Country: None (occurrence: None)
  Receive Date: 20071031
  Receipt Date: 20071022
  Transmission Date: 20080405
  Serious: Yes (Other)
  Sender: FDA-Public Use
  Company Number: STI-2007-01354

PATIENT
  Age: 31 Year
  Sex: Female

DRUGS (1)
  1. 056A CLARIDERM CREAM(HYDROQUINONE) (HYDROQUINONE) (CREAM) [Suspect]
     Indication: SKIN HYPERPIGMENTATION
     Dosage: TOPICAL USED 1 TUBE DURING PREGNANCY  STARTED USE AFTER DELIVERY
     Route: 061
     Dates: start: 20000101

REACTIONS (4)
  - CAESAREAN SECTION [None]
  - COMPLICATION OF DELIVERY [None]
  - DRUG EXPOSURE DURING PREGNANCY [None]
  - SKIN HYPERPIGMENTATION [None]
